FAERS Safety Report 8798760 (Version 2)
Quarter: 2015Q1

REPORT INFORMATION
  Report Type: Report from Study
  Country: US (occurrence: US)
  Receive Date: 20120920
  Receipt Date: 20150321
  Transmission Date: 20150721
  Serious: Yes (Death)
  Sender: FDA-Public Use
  Company Number: US-ROCHE-1123522

PATIENT
  Sex: Female

DRUGS (9)
  1. VP-16 [Concomitant]
     Active Substance: ETOPOSIDE
     Route: 048
  2. ZANTAC [Concomitant]
     Active Substance: RANITIDINE HYDROCHLORIDE
     Route: 065
  3. DECADRON [Concomitant]
     Active Substance: DEXAMETHASONE
     Route: 065
  4. KYTRIL [Concomitant]
     Active Substance: GRANISETRON HYDROCHLORIDE
     Route: 065
  5. CARBOPLATIN. [Concomitant]
     Active Substance: CARBOPLATIN
  6. TAXOL [Concomitant]
     Active Substance: PACLITAXEL
     Route: 065
  7. DOXIL (ISRAEL) [Concomitant]
  8. AVASTIN [Suspect]
     Active Substance: BEVACIZUMAB
     Indication: OVARIAN CANCER
     Route: 042
     Dates: start: 20050822
  9. PERCOCET [Concomitant]
     Active Substance: ACETAMINOPHEN\OXYCODONE HYDROCHLORIDE

REACTIONS (34)
  - Restlessness [Unknown]
  - Oral pain [Unknown]
  - Gait disturbance [Unknown]
  - Abdominal discomfort [Unknown]
  - Musculoskeletal discomfort [Unknown]
  - Pruritus [Unknown]
  - Neuropathy peripheral [Unknown]
  - Dizziness [Unknown]
  - Drug hypersensitivity [Unknown]
  - Pulmonary pain [Unknown]
  - Pain in extremity [Unknown]
  - Muscle spasms [Unknown]
  - Myalgia [Unknown]
  - Death [Fatal]
  - Fatigue [Unknown]
  - Dysphonia [Unknown]
  - Nausea [Unknown]
  - Tongue ulceration [Unknown]
  - Stress [Unknown]
  - Dyspnoea [Unknown]
  - Back pain [Unknown]
  - Tongue dry [Unknown]
  - Toxicity to various agents [Unknown]
  - Aphonia [Unknown]
  - Swollen tongue [Unknown]
  - Constipation [Unknown]
  - Rectal haemorrhage [Unknown]
  - Arthralgia [Unknown]
  - Decreased appetite [Unknown]
  - Erythema [Unknown]
  - Stomatitis [Unknown]
  - Diarrhoea [Unknown]
  - Sinus congestion [Unknown]
  - Glossodynia [Unknown]
